FAERS Safety Report 7939676-0 (Version None)
Quarter: 2011Q4

REPORT INFORMATION
  Report Type: 
  Country: None (occurrence: None)
  Receive Date: 20111125
  Receipt Date: 20111117
  Transmission Date: 20120403
  Serious: Yes (Hospitalization)
  Sender: FDA-Public Use
  Company Number: PHHO2011ES018423

PATIENT
  Sex: Female

DRUGS (9)
  1. REPAGLINIDE [Concomitant]
     Indication: DIABETES MELLITUS
     Dosage: 0.8 MG/ 8 H
     Route: 048
     Dates: start: 20111014, end: 20111102
  2. EMULIQUEN SIMPLE [Concomitant]
     Indication: CONSTIPATION
     Dosage: PRN
     Route: 048
  3. ACETAMINOPHEN [Concomitant]
     Indication: PAIN
     Dosage: PRN
     Route: 048
  4. AFINITOR [Suspect]
     Indication: PANCREATIC NEUROENDOCRINE TUMOUR
     Dosage: 10 MG, QD
     Route: 048
     Dates: start: 20111014, end: 20111102
  5. METFORMIN [Concomitant]
     Indication: DIABETES MELLITUS
     Dosage: 850 MG, QD
     Route: 048
     Dates: start: 20000101, end: 20111102
  6. ZOLPIDEM [Concomitant]
     Indication: INSOMNIA
     Dosage: PRN
     Route: 048
     Dates: start: 20110915
  7. SOM230 [Suspect]
     Indication: PANCREATIC NEUROENDOCRINE TUMOUR METASTATIC
     Dosage: 60 MG, PER 28 DAYS
     Dates: start: 20111014, end: 20111014
  8. OMEPRAZOLE [Concomitant]
     Indication: PROPHYLAXIS
     Dosage: 20 MG, QD
     Route: 048
     Dates: start: 20110915
  9. LISINOPRIL AND HYDROCHLOROTHIAZIDE [Concomitant]
     Indication: HYPERTENSION
     Dosage: 20 MG/12.5MG/ 12 HOURS
     Route: 048
     Dates: start: 20000101

REACTIONS (9)
  - DECREASED APPETITE [None]
  - KLEBSIELLA INFECTION [None]
  - BLOOD CULTURE POSITIVE [None]
  - SLEEP DISORDER [None]
  - COUGH [None]
  - DIARRHOEA [None]
  - DIABETIC KETOACIDOSIS [None]
  - SYNCOPE [None]
  - GENERAL PHYSICAL HEALTH DETERIORATION [None]
